FAERS Safety Report 20984985 (Version 1)
Quarter: 2022Q2

REPORT INFORMATION
  Report Type: Spontaneous
  Country: DE (occurrence: DE)
  Receive Date: 20220621
  Receipt Date: 20220621
  Transmission Date: 20220721
  Serious: Yes (Hospitalization)
  Sender: FDA-Public Use
  Company Number: DE-NOVOPROD-916525

PATIENT
  Age: 36 Year
  Sex: Female
  Weight: 58.3 kg

DRUGS (2)
  1. OZEMPIC [Suspect]
     Active Substance: SEMAGLUTIDE
     Indication: Product used for unknown indication
     Dosage: UNK QW
     Route: 065
     Dates: start: 20200915, end: 20210611
  2. METFORMIN [Concomitant]
     Active Substance: METFORMIN HYDROCHLORIDE
     Indication: Type 2 diabetes mellitus
     Dosage: DOSE: 1000 (NO UNIT REPORTED); 1-0-1
     Route: 065
     Dates: start: 2012

REACTIONS (3)
  - Gastric ulcer haemorrhage [Recovered/Resolved]
  - Weight decreased [Recovered/Resolved]
  - Anaemia [Unknown]

NARRATIVE: CASE EVENT DATE: 20210515
